FAERS Safety Report 6579527-2 (Version None)
Quarter: 2010Q1

REPORT INFORMATION
  Report Type: 
  Country: None (occurrence: None)
  Receive Date: 20100209
  Receipt Date: 20100209
  Transmission Date: 20100710
  Serious: Yes (Other)
  Sender: FDA-Public Use
  Company Number: None

PATIENT
  Sex: Male
  Weight: 52.6173 kg

DRUGS (8)
  1. PROMETHAZINE [Suspect]
     Indication: PAIN
     Dosage: 25 MG Q6H PRN IM ONE DOSE
     Route: 030
  2. PERCOCET [Concomitant]
  3. DIAZEPAM [Concomitant]
  4. FAMOTIDINE [Concomitant]
  5. ONDANSETRON [Concomitant]
  6. PROCHLORPERAZINE [Concomitant]
  7. TAMSULOSIN [Concomitant]
  8. TRAMADOL [Concomitant]

REACTIONS (3)
  - ABNORMAL BEHAVIOUR [None]
  - CONFUSIONAL STATE [None]
  - PARANOIA [None]
